FAERS Safety Report 15187105 (Version 2)
Quarter: 2019Q1

REPORT INFORMATION
  Report Type: Report from Study
  Country: US (occurrence: US)
  Receive Date: 20180723
  Receipt Date: 20190130
  Transmission Date: 20190417
  Serious: No
  Sender: FDA-Public Use
  Company Number: US-EXELIXIS-CABO-17011871

PATIENT
  Sex: Male

DRUGS (1)
  1. CABOMETYX [Suspect]
     Active Substance: CABOZANTINIB S-MALATE
     Indication: RENAL CANCER
     Dosage: 60 MG, QD
     Route: 048
     Dates: start: 20170308

REACTIONS (8)
  - Dyspnoea [Unknown]
  - Arthralgia [Unknown]
  - Rash [Unknown]
  - Malignant neoplasm progression [Unknown]
  - Non-cardiac chest pain [Unknown]
  - Abdominal pain [Unknown]
  - Blood pressure increased [Unknown]
  - Oedema peripheral [Unknown]
